FAERS Safety Report 9437957 (Version 1)
Quarter: 2013Q3

REPORT INFORMATION
  Report Type: Spontaneous
  Country: US (occurrence: US)
  Receive Date: 20130802
  Receipt Date: 20130802
  Transmission Date: 20140515
  Serious: No
  Sender: FDA-Public Use
  Company Number: US-BRISTOL-MYERS SQUIBB COMPANY-18787416

PATIENT
  Age: 59 Year
  Sex: Male
  Weight: 86.17 kg

DRUGS (3)
  1. WARFARIN SODIUM [Suspect]
     Indication: COAGULOPATHY
     Dosage: 15 MG ON TUESDAY, THURSDAY?10MG ON OTHER DAYS
  2. CHANTIX [Suspect]
     Indication: TOBACCO USER
     Dosage: TAB?RAN OUT OF DRUG IN:JAN 13
     Route: 048
     Dates: start: 2011
  3. HYDROCODONE [Concomitant]
     Indication: BACK PAIN

REACTIONS (4)
  - Mood swings [Not Recovered/Not Resolved]
  - Agitation [Not Recovered/Not Resolved]
  - Malaise [Not Recovered/Not Resolved]
  - International normalised ratio decreased [Unknown]
